FAERS Safety Report 7877005-1 (Version None)
Quarter: 2011Q4

REPORT INFORMATION
  Report Type: 
  Country: None (occurrence: None)
  Receive Date: 20111031
  Receipt Date: 20110812
  Transmission Date: 20120403
  Serious: No
  Sender: FDA-Public Use
  Company Number: US-ABBOTT-11P-163-0846863-00

PATIENT
  Sex: Female
  Weight: 47.67 kg

DRUGS (5)
  1. XANAX [Concomitant]
     Indication: INITIAL INSOMNIA
  2. CALCIUM CHANNEL BLOCKERS [Concomitant]
     Indication: RAYNAUD'S PHENOMENON
  3. CALCIUM CHANNEL BLOCKERS [Concomitant]
     Indication: MITRAL VALVE PROLAPSE
  4. THYROID TAB [Concomitant]
     Indication: HYPOTHYROIDISM
  5. CREON [Suspect]
     Indication: PANCREATITIS
     Dosage: 4 CAPSULES WITH MEALS
     Route: 048

REACTIONS (6)
  - ABDOMINAL DISTENSION [None]
  - DRUG INEFFECTIVE [None]
  - NAUSEA [None]
  - INCORRECT STORAGE OF DRUG [None]
  - FLATULENCE [None]
  - POOR QUALITY DRUG ADMINISTERED [None]
